FAERS Safety Report 18301769 (Version 1)
Quarter: 2020Q3

REPORT INFORMATION
  Report Type: Spontaneous
  Country: IN (occurrence: IN)
  Receive Date: 20200923
  Receipt Date: 20200923
  Transmission Date: 20201103
  Serious: Yes (Hospitalization, Other)
  Sender: FDA-Public Use
  Company Number: IN-PFIZER INC-2020296389

PATIENT
  Age: 35 Year
  Sex: Female

DRUGS (3)
  1. LUPRIDE [Concomitant]
     Active Substance: LEUPROLIDE ACETATE
     Dosage: 22.5 MG
     Dates: start: 20200804
  2. LETROZOLE. [Concomitant]
     Active Substance: LETROZOLE
     Dosage: 2.5 MG, 1X/DAY
     Dates: start: 20200806
  3. PALBACE [Suspect]
     Active Substance: PALBOCICLIB
     Indication: BREAST CANCER METASTATIC
     Dosage: 100 MG, 1X/DAY
     Route: 048
     Dates: start: 20200805, end: 2020

REACTIONS (9)
  - Pancytopenia [Unknown]
  - Dizziness [Unknown]
  - Fatigue [Unknown]
  - Haemorrhage [Unknown]
  - Abdominal discomfort [Unknown]
  - Asthenia [Unknown]
  - White blood cell count decreased [Unknown]
  - Thrombosis [Unknown]
  - Pallor [Unknown]

NARRATIVE: CASE EVENT DATE: 2020
